FAERS Safety Report 17302158 (Version 1)
Quarter: 2020Q1

REPORT INFORMATION
  Report Type: Spontaneous
  Country: SE (occurrence: SE)
  Receive Date: 20200122
  Receipt Date: 20200122
  Transmission Date: 20200409
  Serious: Yes (Hospitalization)
  Sender: FDA-Public Use
  Company Number: SE-MYLANLABS-2020M1007602

PATIENT
  Sex: Male

DRUGS (1)
  1. LERGIGAN FORTE 50 MG FILMDRAGERADE TABLETTER [Suspect]
     Active Substance: PROMETHAZINE HYDROCHLORIDE
     Indication: PRODUCT USED FOR UNKNOWN INDICATION
     Dosage: 100 MILLIGRAM
     Dates: start: 20180522, end: 20180522

REACTIONS (2)
  - Intentional overdose [Unknown]
  - Anxiety [Unknown]

NARRATIVE: CASE EVENT DATE: 20180522
